FAERS Safety Report 17259510 (Version 1)
Quarter: 2020Q1

REPORT INFORMATION
  Report Type: Spontaneous
  Country: US (occurrence: US)
  Receive Date: 20200110
  Receipt Date: 20200110
  Transmission Date: 20200409
  Serious: No
  Sender: FDA-Public Use
  Company Number: US-ELI_LILLY_AND_COMPANY-US201912010314

PATIENT
  Age: 48 Year
  Sex: Female

DRUGS (1)
  1. EMGALITY [Suspect]
     Active Substance: GALCANEZUMAB-GNLM
     Indication: MIGRAINE
     Dosage: 120 DOSAGE FORM, UNKNOWN
     Route: 065

REACTIONS (3)
  - Mental impairment [Unknown]
  - Migraine [Unknown]
  - Speech disorder [Unknown]

NARRATIVE: CASE EVENT DATE: 20191128
